FAERS Safety Report 25151720 (Version 7)
Quarter: 2025Q3

REPORT INFORMATION
  Report Type: Report from Study
  Country: US (occurrence: US)
  Receive Date: 20250402
  Receipt Date: 20250815
  Transmission Date: 20251020
  Serious: Yes (Hospitalization, Other)
  Sender: TAKEDA
  Company Number: US-TAKEDA-2023TUS123997

PATIENT
  Age: 62 Year
  Sex: Female

DRUGS (11)
  1. IXAZOMIB [Suspect]
     Active Substance: IXAZOMIB
     Indication: Plasma cell myeloma
  2. IXAZOMIB [Suspect]
     Active Substance: IXAZOMIB
  3. IXAZOMIB [Suspect]
     Active Substance: IXAZOMIB
  4. IXAZOMIB [Suspect]
     Active Substance: IXAZOMIB
  5. IXAZOMIB [Suspect]
     Active Substance: IXAZOMIB
  6. IXAZOMIB [Suspect]
     Active Substance: IXAZOMIB
  7. IXAZOMIB [Suspect]
     Active Substance: IXAZOMIB
     Dosage: 2.3 MILLIGRAM, QD
  8. IXAZOMIB [Suspect]
     Active Substance: IXAZOMIB
     Dosage: 3 MILLIGRAM, QD
  9. IXAZOMIB [Suspect]
     Active Substance: IXAZOMIB
  10. DEXAMETHASONE [Concomitant]
     Active Substance: DEXAMETHASONE
  11. POMALYST [Concomitant]
     Active Substance: POMALIDOMIDE

REACTIONS (23)
  - Pleural effusion [Unknown]
  - Decreased immune responsiveness [Unknown]
  - Pulmonary nocardiosis [Not Recovered/Not Resolved]
  - Neuropathy peripheral [Not Recovered/Not Resolved]
  - White blood cell count decreased [Recovering/Resolving]
  - Abdominal discomfort [Unknown]
  - Neutrophil count decreased [Recovering/Resolving]
  - Streptococcal infection [Recovered/Resolved]
  - COVID-19 [Recovered/Resolved]
  - Joint swelling [Not Recovered/Not Resolved]
  - Pigmentation disorder [Recovering/Resolving]
  - Arthritis [Not Recovered/Not Resolved]
  - Paraesthesia [Unknown]
  - Increased tendency to bruise [Unknown]
  - Hypoaesthesia [Unknown]
  - Asthenia [Not Recovered/Not Resolved]
  - Fatigue [Unknown]
  - Pain in extremity [Unknown]
  - Platelet count decreased [Unknown]
  - Nausea [Recovering/Resolving]
  - Back pain [Not Recovered/Not Resolved]
  - Diarrhoea [Unknown]
  - Vomiting [Recovering/Resolving]

NARRATIVE: CASE EVENT DATE: 20231107
